FAERS Safety Report 11235429 (Version 1)
Quarter: 2015Q3

REPORT INFORMATION
  Report Type: Spontaneous
  Country: JP (occurrence: JP)
  Receive Date: 20150702
  Receipt Date: 20150702
  Transmission Date: 20151125
  Serious: Yes (Death, Hospitalization)
  Sender: FDA-Public Use
  Company Number: JP-ELI_LILLY_AND_COMPANY-JP201506010421

PATIENT
  Age: 75 Year
  Sex: Male

DRUGS (2)
  1. ADCIRCA [Suspect]
     Active Substance: TADALAFIL
     Indication: PRODUCT USED FOR UNKNOWN INDICATION
     Route: 048
  2. VOLIBRIS [Concomitant]
     Active Substance: AMBRISENTAN

REACTIONS (4)
  - Atrial septal defect [Unknown]
  - Incorrect route of drug administration [Unknown]
  - Death [Fatal]
  - Wrong technique in product usage process [Unknown]
